FAERS Safety Report 6013899-2 (Version None)
Quarter: 2008Q4

REPORT INFORMATION
  Report Type: 
  Country: None (occurrence: None)
  Receive Date: 20081219
  Receipt Date: 20081112
  Transmission Date: 20090506
  Serious: No
  Sender: FDA-Public Use
  Company Number: A0755989A

PATIENT
  Age: 57 Year
  Sex: Female

DRUGS (4)
  1. ADVAIR DISKUS 250/50 [Suspect]
     Indication: ASTHMA
     Route: 055
     Dates: start: 20071101
  2. CELEXA [Concomitant]
  3. MUCINEX [Concomitant]
  4. M.V.I. [Concomitant]

REACTIONS (3)
  - DYSPHONIA [None]
  - DYSPNOEA [None]
  - RESPIRATION ABNORMAL [None]
